FAERS Safety Report 9857711 (Version 1)
Quarter: 2014Q1

REPORT INFORMATION
  Report Type: Spontaneous
  Country: US (occurrence: US)
  Receive Date: 20140131
  Receipt Date: 20140131
  Transmission Date: 20141002
  Serious: No
  Sender: FDA-Public Use
  Company Number: US-BIOGENIDEC-2014BI009637

PATIENT
  Age: 62 Year
  Sex: Female

DRUGS (1)
  1. TYSABRI [Suspect]
     Indication: MULTIPLE SCLEROSIS
     Route: 042
     Dates: start: 20121205

REACTIONS (5)
  - Stress [Not Recovered/Not Resolved]
  - Crying [Recovered/Resolved]
  - Muscular weakness [Not Recovered/Not Resolved]
  - Emotional distress [Not Recovered/Not Resolved]
  - Conversion disorder [Recovered/Resolved]
